FAERS Safety Report 5839383-4 (Version None)
Quarter: 2008Q3

REPORT INFORMATION
  Report Type: 
  Country: None (occurrence: None)
  Receive Date: 20080806
  Receipt Date: 20080725
  Transmission Date: 20090109
  Serious: Yes (Hospitalization)
  Sender: FDA-Public Use
  Company Number: 2008SP013429

PATIENT
  Age: 66 Year
  Sex: Female

DRUGS (2)
  1. RIBAVIRIN [Suspect]
     Indication: HEPATITIS C
     Dates: start: 20040427, end: 20040813
  2. PEGASYS [Suspect]
     Indication: HEPATITIS C
     Dates: start: 20040427, end: 20040813

REACTIONS (2)
  - HEAD INJURY [None]
  - SYNCOPE [None]
